FAERS Safety Report 8763748 (Version 1)
Quarter: 2012Q4

REPORT INFORMATION
  Report Type: Spontaneous
  Country: US (occurrence: None)
  Receive Date: 20120831
  Receipt Date: 20120831
  Transmission Date: 20130627
  Serious: Yes (Life-Threatening, Hospitalization)
  Sender: FDA-Public Use
  Company Number: None

PATIENT
  Age: 30 Year
  Sex: Female

DRUGS (1)
  1. OPANA ER [Suspect]
     Dosage: Unknown Abuse suspected 
Dates of use:  about 3 months PTA
     Route: 042

REACTIONS (6)
  - Renal failure acute [None]
  - Thrombotic thrombocytopenic purpura [None]
  - Staphylococcal bacteraemia [None]
  - Abdominal pain [None]
  - Wrong technique in drug usage process [None]
  - Drug abuse [None]
